FAERS Safety Report 9344724 (Version 1)
Quarter: 2013Q2

REPORT INFORMATION
  Report Type: Spontaneous
  Country: BR (occurrence: BR)
  Receive Date: 20130612
  Receipt Date: 20130612
  Transmission Date: 20140414
  Serious: Yes (Other)
  Sender: FDA-Public Use
  Company Number: BR-PFIZER INC-2013173883

PATIENT
  Age: 89 Year
  Sex: Female

DRUGS (5)
  1. LIPITOR [Suspect]
     Indication: BLOOD CHOLESTEROL INCREASED
     Dosage: 20 MG, 1X/DAY
     Route: 048
     Dates: start: 20120607, end: 201212
  2. ASPIRINA PREVENT [Concomitant]
     Dosage: UNK
  3. BENICAR [Concomitant]
     Dosage: UNK
  4. CEBRALAT [Concomitant]
     Dosage: UNK
  5. ZETIA [Concomitant]
     Dosage: UNK

REACTIONS (1)
  - Angiopathy [Unknown]
